FAERS Safety Report 4455136-6 (Version None)
Quarter: 2004Q3

REPORT INFORMATION
  Report Type: 
  Country: None (occurrence: None)
  Receive Date: 20040907
  Receipt Date: 20040826
  Transmission Date: 20050211
  Serious: Yes (Life-Threatening, Hospitalization)
  Sender: FDA-Public Use
  Company Number: FR-GLAXOSMITHKLINE-B0343777B

PATIENT
  Sex: Female

DRUGS (5)
  1. RETROVIR [Suspect]
     Indication: ANTIVIRAL PROPHYLAXIS
     Route: 042
     Dates: start: 20040701, end: 20040730
  2. VIRAMUNE [Suspect]
     Indication: ANTIVIRAL PROPHYLAXIS
     Dosage: .2MG SINGLE DOSE
     Route: 048
     Dates: start: 20040701, end: 20040701
  3. COMBIVIR [Suspect]
     Indication: HIV INFECTION
     Dates: start: 20040624, end: 20040701
  4. RETROVIR [Suspect]
     Dates: start: 20040701, end: 20040701
  5. VIRAMUNE [Suspect]
     Indication: HIV INFECTION
     Dates: start: 20040624, end: 20040701

REACTIONS (9)
  - ABDOMINAL DISTENSION [None]
  - ANAEMIA [None]
  - DRUG EXPOSURE DURING PREGNANCY [None]
  - DYSPEPSIA [None]
  - FOETAL HEART RATE DISORDER [None]
  - INTRAVENTRICULAR HAEMORRHAGE [None]
  - NEONATAL RESPIRATORY DISTRESS SYNDROME [None]
  - PREMATURE BABY [None]
  - RESPIRATORY DISORDER NEONATAL [None]
